FAERS Safety Report 7392430-3 (Version None)
Quarter: 2011Q2

REPORT INFORMATION
  Report Type: 
  Country: None (occurrence: None)
  Receive Date: 20110404
  Receipt Date: 20110323
  Transmission Date: 20111010
  Serious: Yes (Hospitalization)
  Sender: FDA-Public Use
  Company Number: US-BRACCO-006013

PATIENT
  Sex: Female

DRUGS (7)
  1. ANALGESICS [Concomitant]
  2. NORMAL SALINE [Concomitant]
     Route: 014
     Dates: start: 20110318, end: 20110318
  3. ISOVUE-128 [Suspect]
     Indication: COMPUTERISED TOMOGRAM
     Route: 014
     Dates: start: 20110318, end: 20110318
  4. MULTIHANCE [Suspect]
     Indication: ARTHROGRAM
     Route: 014
     Dates: start: 20110318, end: 20110318
  5. ISOVUE-128 [Suspect]
     Indication: JOINT DISLOCATION
     Route: 014
     Dates: start: 20110318, end: 20110318
  6. MULTIHANCE [Suspect]
     Indication: NUCLEAR MAGNETIC RESONANCE IMAGING
     Route: 014
     Dates: start: 20110318, end: 20110318
  7. MULTIHANCE [Suspect]
     Indication: JOINT DISLOCATION
     Route: 014
     Dates: start: 20110318, end: 20110318

REACTIONS (1)
  - INJECTION SITE INFECTION [None]
